FAERS Safety Report 9848120 (Version 1)
Quarter: 2014Q1

REPORT INFORMATION
  Report Type: Spontaneous
  Country: US (occurrence: None)
  Receive Date: 20140123
  Receipt Date: 20140123
  Transmission Date: 20141002
  Serious: Yes (Hospitalization)
  Sender: FDA-Public Use
  Company Number: None

PATIENT
  Age: 42 Year
  Sex: Male
  Weight: 110.9 kg

DRUGS (1)
  1. VANCOMYCIN [Suspect]
     Dates: start: 20131108, end: 20131115

REACTIONS (3)
  - Sepsis [None]
  - Hypotension [None]
  - Renal failure acute [None]
